FAERS Safety Report 24832017 (Version 1)
Quarter: 2025Q1

REPORT INFORMATION
  Report Type: Spontaneous
  Country: US (occurrence: None)
  Receive Date: 20250110
  Receipt Date: 20250110
  Transmission Date: 20250408
  Serious: Yes (Life-Threatening, Hospitalization, Disabling)
  Sender: FDA-CTU
  Company Number: None

PATIENT
  Age: 70 Year
  Sex: Female
  Weight: 79.38 kg

DRUGS (1)
  1. OZEMPIC [Suspect]
     Active Substance: SEMAGLUTIDE
     Indication: Glycosylated haemoglobin increased
     Dosage: FREQUENCY : WEEKLY;?
     Route: 042
     Dates: start: 20241010, end: 20241130

REACTIONS (10)
  - Abdominal discomfort [None]
  - Dysgeusia [None]
  - Dysphagia [None]
  - Oligodipsia [None]
  - Fatigue [None]
  - Confusional state [None]
  - Dehydration [None]
  - Hyperthyroidism [None]
  - Blood calcium increased [None]
  - Aphasia [None]

NARRATIVE: CASE EVENT DATE: 20241130
